FAERS Safety Report 25561891 (Version 1)
Quarter: 2025Q3

REPORT INFORMATION
  Report Type: Spontaneous
  Country: US (occurrence: US)
  Receive Date: 20250716
  Receipt Date: 20250716
  Transmission Date: 20251021
  Serious: No
  Sender: NOVO NORDISK
  Company Number: US-NOVOPROD-1283690

PATIENT
  Age: 23 Year
  Sex: Female

DRUGS (2)
  1. OZEMPIC [Suspect]
     Active Substance: SEMAGLUTIDE
     Indication: Product used for unknown indication
     Route: 058
     Dates: start: 202310
  2. FABRAZYME [Concomitant]
     Active Substance: AGALSIDASE BETA
     Indication: Fabry^s disease
     Route: 042
     Dates: start: 20230301

REACTIONS (3)
  - Weight decreased [Unknown]
  - Female sterilisation [Unknown]
  - Road traffic accident [Unknown]

NARRATIVE: CASE EVENT DATE: 20230101
